FAERS Safety Report 23367033 (Version 1)
Quarter: 2024Q1

REPORT INFORMATION
  Report Type: Spontaneous
  Country: US (occurrence: US)
  Receive Date: 20240104
  Receipt Date: 20240104
  Transmission Date: 20240409
  Serious: Yes (Other)
  Sender: FDA-Public Use
  Company Number: US-ANIPHARMA-2023-US-025500

PATIENT
  Age: 43 Year
  Sex: Male
  Weight: 65.32 kg

DRUGS (1)
  1. FLUVOXAMINE [Suspect]
     Active Substance: FLUVOXAMINE
     Indication: Obsessive-compulsive disorder
     Dosage: UNKNOWN LOW DOSE / NOW UP TO 300MG PER DAY
     Route: 048
     Dates: start: 201508

REACTIONS (3)
  - Depression [Unknown]
  - Drug ineffective [Not Recovered/Not Resolved]
  - Sexual dysfunction [Unknown]
